FAERS Safety Report 18001600 (Version 1)
Quarter: 2020Q3

REPORT INFORMATION
  Report Type: Spontaneous
  Country: IN (occurrence: IN)
  Receive Date: 20200709
  Receipt Date: 20200709
  Transmission Date: 20201103
  Serious: Yes (Hospitalization)
  Sender: FDA-Public Use
  Company Number: IN-PERRIGO-20IN009545

PATIENT
  Age: 26 Year
  Sex: Male

DRUGS (7)
  1. TESTOSTERONE CYPIONATE. [Suspect]
     Active Substance: TESTOSTERONE CYPIONATE
     Indication: INTENTIONAL PRODUCT MISUSE
     Dosage: 1 ML, WEEKLY
     Route: 030
  2. WHEY PROTEIN [Suspect]
     Active Substance: WHEY
     Indication: ROUTINE HEALTH MAINTENANCE
     Dosage: 500 G, QD
     Route: 048
  3. BCAA /00847901/ [Suspect]
     Active Substance: ISOLEUCINE\LEUCINE\VALINE
     Indication: ROUTINE HEALTH MAINTENANCE
     Dosage: 1 SPOON, QD
     Route: 048
  4. L GLUTAMINE [Suspect]
     Active Substance: GLUTAMINE
     Indication: ROUTINE HEALTH MAINTENANCE
     Dosage: 1 SPOON, QD
     Route: 048
  5. TRIIODOTHYRONINE [Suspect]
     Active Substance: LIOTHYRONINE SODIUM
     Indication: INTENTIONAL PRODUCT MISUSE
     Dosage: 25 MCG, QD
     Route: 048
  6. DIETARY SUPPLEMENT [Suspect]
     Active Substance: DIETARY SUPPLEMENT
     Indication: MEDICAL DIET
     Dosage: EPIQ SHRED FAT BURNER, 1 CAPSULE QD
     Route: 048
  7. STANOZOLOL [Suspect]
     Active Substance: STANOZOLOL
     Indication: INTENTIONAL PRODUCT MISUSE
     Dosage: 2 ML, WEEKLY
     Route: 030

REACTIONS (2)
  - Acute myocardial infarction [Recovered/Resolved]
  - Intentional product misuse [Recovered/Resolved]
